FAERS Safety Report 21991645 (Version 1)
Quarter: 2023Q1

REPORT INFORMATION
  Report Type: Report from Study
  Country: DE (occurrence: DE)
  Receive Date: 20230214
  Receipt Date: 20230214
  Transmission Date: 20230417
  Serious: Yes (Hospitalization)
  Sender: FDA-Public Use
  Company Number: DE-GLAXOSMITHKLINE-DE2018226748

PATIENT
  Age: 61 Year
  Sex: Female
  Weight: 87 kg

DRUGS (10)
  1. RAMIPRIL [Suspect]
     Active Substance: RAMIPRIL
     Indication: Product used for unknown indication
     Dosage: 10 MILLIGRAM, QD, 5 MG, BID
     Route: 065
     Dates: start: 20110819, end: 20181012
  2. FLUTICASONE FUROATE\UMECLIDINIUM BROMIDE\VILANTEROL TRIFENATATE [Suspect]
     Active Substance: FLUTICASONE FUROATE\UMECLIDINIUM BROMIDE\VILANTEROL TRIFENATATE
     Indication: Chronic obstructive pulmonary disease
     Dosage: 92/55/22 UG
     Route: 065
     Dates: start: 20180625
  3. SPIRIVA [Concomitant]
     Active Substance: TIOTROPIUM BROMIDE MONOHYDRATE
     Dosage: 5 UG, QID
     Route: 065
     Dates: start: 201001, end: 20180624
  4. AMLODIPINE [Concomitant]
     Active Substance: AMLODIPINE BESYLATE
     Dosage: 10 MG, QID
     Route: 065
     Dates: start: 20181013
  5. LANTUS [Concomitant]
     Active Substance: INSULIN GLARGINE
     Dosage: 10 UNK, UNK
     Route: 065
     Dates: start: 201506
  6. ALBUTEROL [Concomitant]
     Active Substance: ALBUTEROL
     Dosage: 12 MG, PRN
     Route: 065
     Dates: start: 201001
  7. METOPROLOL [Concomitant]
     Active Substance: METOPROLOL
     Dosage: 190 MILLIGRAM, QD, 95 MG, BID
     Route: 065
     Dates: start: 20110819
  8. FORMOTEROL [Concomitant]
     Active Substance: FORMOTEROL
     Dosage: 24 MICROGRAM, QD, 12 UG, BID
     Route: 065
     Dates: start: 20170116, end: 20180624
  9. BECLOMETHASONE [Concomitant]
     Active Substance: BECLOMETHASONE
     Dosage: 50 MILLIGRAM, QD, 25 MG, BID
     Route: 065
     Dates: start: 20171128, end: 20180624
  10. JANUMET [Concomitant]
     Active Substance: METFORMIN HYDROCHLORIDE\SITAGLIPTIN PHOSPHATE
     Dosage: 2000 MILLIGRAM, QD, 1000 MG, BID
     Route: 065
     Dates: start: 20150616

REACTIONS (1)
  - Hypersensitivity [Recovered/Resolved]

NARRATIVE: CASE EVENT DATE: 20180930
